FAERS Safety Report 20985991 (Version 1)
Quarter: 2022Q2

REPORT INFORMATION
  Report Type: Report from Study
  Country: US (occurrence: US)
  Receive Date: 20220621
  Receipt Date: 20220621
  Transmission Date: 20220721
  Serious: Yes (Other)
  Sender: FDA-Public Use
  Company Number: US-CELGENE-USA-20211102224

PATIENT
  Age: 67 Year
  Sex: Female
  Weight: 58.97 kg

DRUGS (14)
  1. REVLIMID [Suspect]
     Active Substance: LENALIDOMIDE
     Indication: Plasma cell myeloma
     Dosage: 10 MILLIGRAM
     Route: 048
     Dates: start: 201811
  2. REVLIMID [Suspect]
     Active Substance: LENALIDOMIDE
     Indication: Plasma cell myeloma
  3. COLESTIPOL HYDROCHLORIDE [Concomitant]
     Active Substance: COLESTIPOL HYDROCHLORIDE
     Indication: Product used for unknown indication
     Dosage: FREQUENCY TEXT: UNKNOWN?1 GRAM
     Route: 048
  4. FLUTICASONE PROPIONATE [Concomitant]
     Active Substance: FLUTICASONE PROPIONATE
     Indication: Product used for unknown indication
     Dosage: FREQUENCY TEXT: UNKNOWN?50 MICROGRAM
     Route: 065
  5. ALBUTEROL SULFATE [Concomitant]
     Active Substance: ALBUTEROL SULFATE
     Indication: Product used for unknown indication
     Dosage: FREQUENCY TEXT: UNKNOWN?90 MICROGRAM
     Route: 065
  6. COLESTIPOL MICRONIZED [Concomitant]
     Indication: Product used for unknown indication
     Dosage: FREQUENCY TEXT: UNKNOWN?1 GRAM
     Route: 048
  7. ASPIRIN [Concomitant]
     Active Substance: ASPIRIN
     Indication: Product used for unknown indication
     Dosage: FREQUENCY TEXT: UNKNOWN?81 MILLIGRAM
     Route: 048
  8. VENTOLIN HFA [Concomitant]
     Active Substance: ALBUTEROL SULFATE
     Indication: Product used for unknown indication
     Dosage: FREQUENCY TEXT: UNKNOWN?90 MCG HFA AER AD
     Route: 065
  9. FLONASE [Concomitant]
     Active Substance: FLUTICASONE PROPIONATE
     Indication: Allergy prophylaxis
     Dosage: FREQUENCY TEXT: UNKNOWN?UNKNOWN
     Route: 065
  10. TYLENOL [Concomitant]
     Active Substance: ACETAMINOPHEN
     Indication: Nasopharyngitis
     Dosage: FREQUENCY TEXT: UNKNOWN?UNKNOWN
     Route: 065
  11. RESTASIS [Concomitant]
     Active Substance: CYCLOSPORINE
     Indication: Nasopharyngitis
     Dosage: FREQUENCY TEXT: UNKNOWN?UNKNOWN
     Route: 065
  12. PROBIOTICS NOS [Concomitant]
     Active Substance: PROBIOTICS NOS
     Indication: Nasopharyngitis
     Dosage: FREQUENCY TEXT: UNKNOWN?UNKNOWN
     Route: 065
  13. VITAMIN B12 [Concomitant]
     Active Substance: CYANOCOBALAMIN
     Indication: Nasopharyngitis
     Dosage: FREQUENCY TEXT: UNKNOWN?UNKNOWN
     Route: 065
  14. VITAMIN D [Concomitant]
     Active Substance: VITAMIN D NOS
     Indication: Nasopharyngitis
     Dosage: FREQUENCY TEXT: UNKNOWN?UNKNOWN
     Route: 065

REACTIONS (2)
  - Diarrhoea [Unknown]
  - Blood magnesium decreased [Unknown]

NARRATIVE: CASE EVENT DATE: 20211021
